FAERS Safety Report 9415556 (Version 1)
Quarter: 2013Q3

REPORT INFORMATION
  Report Type: Spontaneous
  Country: US (occurrence: US)
  Receive Date: 20130723
  Receipt Date: 20130723
  Transmission Date: 20140515
  Serious: Yes (Other)
  Sender: FDA-Public Use
  Company Number: US-GLAXOSMITHKLINE-B0909988A

PATIENT
  Age: 33 Year
  Sex: Female

DRUGS (1)
  1. ORLISTAT [Suspect]
     Indication: WEIGHT DECREASED
     Route: 065

REACTIONS (13)
  - Rhabdomyolysis [Recovering/Resolving]
  - Myopathy [Recovering/Resolving]
  - Vitamin D deficiency [Recovering/Resolving]
  - Blood creatine phosphokinase increased [Unknown]
  - Pain [Unknown]
  - Hypochromic anaemia [Unknown]
  - Iron deficiency [Unknown]
  - Calcium ionised decreased [Unknown]
  - Blood parathyroid hormone increased [Unknown]
  - Aldolase increased [Unknown]
  - Blood lactate dehydrogenase increased [Unknown]
  - Mobility decreased [Unknown]
  - Blood 1,25-dihydroxycholecalciferol decreased [Unknown]
